FAERS Safety Report 18355960 (Version 1)
Quarter: 2020Q4

REPORT INFORMATION
  Report Type: Spontaneous
  Country: US (occurrence: US)
  Receive Date: 20201007
  Receipt Date: 20201007
  Transmission Date: 20210114
  Serious: No
  Sender: FDA-Public Use
  Company Number: US-TEVA-2020-US-1836550

PATIENT
  Age: 77 Year
  Sex: Female

DRUGS (5)
  1. RUBRACA [Suspect]
     Active Substance: RUCAPARIB CAMSYLATE
     Route: 048
     Dates: start: 202008
  2. AMOXICILLIN. [Suspect]
     Active Substance: AMOXICILLIN
     Indication: SKIN INFECTION
     Route: 065
     Dates: start: 20200912
  3. RUBRACA [Suspect]
     Active Substance: RUCAPARIB CAMSYLATE
     Dosage: 1200 MILLIGRAM DAILY;
     Route: 048
     Dates: end: 20200918
  4. CLINDAMYCIN. [Suspect]
     Active Substance: CLINDAMYCIN
     Indication: SKIN INFECTION
     Dosage: 1200 MILLIGRAM DAILY;
     Dates: start: 20200912
  5. RUBRACA [Suspect]
     Active Substance: RUCAPARIB CAMSYLATE
     Indication: OVARIAN CANCER
     Dosage: 1200 MILLIGRAM DAILY;
     Route: 048
     Dates: start: 20200809

REACTIONS (4)
  - Gastrooesophageal reflux disease [Not Recovered/Not Resolved]
  - Diarrhoea [Recovered/Resolved]
  - Pruritus [Recovered/Resolved]
  - Abdominal discomfort [Unknown]

NARRATIVE: CASE EVENT DATE: 20200913
